FAERS Safety Report 4728278-5 (Version None)
Quarter: 2005Q3

REPORT INFORMATION
  Report Type: 
  Country: None (occurrence: None)
  Receive Date: 20050727
  Receipt Date: 20050712
  Transmission Date: 20060218
  Serious: Yes (Other)
  Sender: FDA-Public Use
  Company Number: 8011092

PATIENT
  Age: 31 Year
  Sex: Female

DRUGS (2)
  1. KEPPRA [Suspect]
     Dosage: 750 MG 2/D
  2. PROGESTERONE [Suspect]
     Indication: CONTRACEPTION

REACTIONS (1)
  - PREGNANCY ON ORAL CONTRACEPTIVE [None]
